FAERS Safety Report 7472449-4 (Version None)
Quarter: 2011Q2

REPORT INFORMATION
  Report Type: 
  Country: None (occurrence: None)
  Receive Date: 20110511
  Receipt Date: 20110427
  Transmission Date: 20111010
  Serious: Yes (Hospitalization, Other)
  Sender: FDA-Public Use
  Company Number: PHHY2008JP11855

PATIENT
  Sex: Female
  Weight: 13 kg

DRUGS (17)
  1. CERTICAN [Suspect]
     Dosage: 0.75 MG
     Route: 048
     Dates: start: 20060203, end: 20060424
  2. AZATHIOPRINE [Suspect]
     Indication: HEART TRANSPLANT
     Route: 048
  3. PROGRAF [Suspect]
     Dosage: 4.0 MG
     Route: 048
     Dates: start: 20060320, end: 20060424
  4. CERTICAN [Suspect]
     Indication: HEART TRANSPLANT
     Dosage: 0.5 MG
     Route: 048
     Dates: start: 20060123, end: 20060130
  5. CERTICAN [Suspect]
     Dosage: UNK
  6. PROGRAF [Suspect]
     Dosage: 4.5 MG
     Route: 048
     Dates: start: 20060123, end: 20060216
  7. CERTICAN [Suspect]
     Dosage: 1 MG
     Route: 048
     Dates: start: 20060130, end: 20060203
  8. CERTICAN [Suspect]
     Dosage: UNK
     Dates: end: 20090202
  9. NEORAL [Suspect]
     Indication: HEART TRANSPLANT
  10. CELLCEPT [Suspect]
     Indication: HEART TRANSPLANT
     Dosage: UNK
     Route: 048
     Dates: start: 20090201
  11. TENORMIN [Concomitant]
     Dosage: 12 MG
     Route: 048
  12. PROGRAF [Suspect]
     Dosage: 3.0 MG
     Route: 048
     Dates: start: 20060216, end: 20060320
  13. TACROLIMUS [Suspect]
     Indication: HEART TRANSPLANT
     Dosage: UNK
  14. FAMOTIDINE [Concomitant]
     Dosage: 12 MG
     Route: 048
  15. EVEROLIMUS [Concomitant]
  16. PROGRAF [Suspect]
     Indication: HEART TRANSPLANT
     Dosage: 4.8 MG
     Route: 048
     Dates: end: 20060123
  17. SIROLIMUS [Concomitant]

REACTIONS (10)
  - RESPIRATORY SYNCYTIAL VIRUS INFECTION [None]
  - DIARRHOEA [None]
  - COUGH [None]
  - HEART TRANSPLANT REJECTION [None]
  - RENAL IMPAIRMENT [None]
  - RASH ERYTHEMATOUS [None]
  - NASOPHARYNGITIS [None]
  - INTERSTITIAL LUNG DISEASE [None]
  - PYREXIA [None]
  - NAUSEA [None]
